FAERS Safety Report 5942993-7 (Version None)
Quarter: 2008Q4

REPORT INFORMATION
  Report Type: 
  Country: None (occurrence: None)
  Receive Date: 20081106
  Receipt Date: 20081031
  Transmission Date: 20090506
  Serious: Yes (Hospitalization)
  Sender: FDA-Public Use
  Company Number: US-ASTRAZENECA-2006UW09866

PATIENT
  Age: 83 Year
  Sex: Female
  Weight: 54.4 kg

DRUGS (8)
  1. NEXIUM [Suspect]
     Indication: GASTROOESOPHAGEAL REFLUX DISEASE
     Route: 048
     Dates: start: 20060101, end: 20080901
  2. NEXIUM [Suspect]
     Route: 048
     Dates: start: 20080901
  3. NASONEX [Concomitant]
  4. MIACALCIN [Concomitant]
  5. ALBUTEROL [Concomitant]
  6. DITROPAN [Concomitant]
  7. OSCAL [Concomitant]
  8. MULTI-VITAMIN [Concomitant]

REACTIONS (4)
  - DIARRHOEA [None]
  - DIZZINESS [None]
  - FALL [None]
  - WEIGHT DECREASED [None]
